FAERS Safety Report 11038653 (Version 1)
Quarter: 2015Q2

REPORT INFORMATION
  Report Type: Spontaneous
  Country: IT (occurrence: None)
  Receive Date: 20150415
  Receipt Date: 20150415
  Transmission Date: 20150821
  Serious: Yes (Other)
  Sender: FDA-Public Use
  Company Number: TIR-04426

PATIENT
  Age: 26 Year
  Sex: Female

DRUGS (2)
  1. SEVELAMER CARBONATE. [Suspect]
     Active Substance: SEVELAMER CARBONATE
     Indication: DIALYSIS
  2. LEVOTHYROXINE [Suspect]
     Active Substance: LEVOTHYROXINE
     Indication: AUTOIMMUNE THYROIDITIS
     Route: 048

REACTIONS (10)
  - Drug interaction [None]
  - Blood thyroid stimulating hormone increased [None]
  - Fatigue [None]
  - Temperature intolerance [None]
  - No therapeutic response [None]
  - Somnolence [None]
  - Dialysis [None]
  - Chronic kidney disease [None]
  - Glomerulonephritis [None]
  - Myxoedema [None]
